FAERS Safety Report 13135185 (Version 2)
Quarter: 2017Q1

REPORT INFORMATION
  Report Type: Other
  Country: JP (occurrence: JP)
  Receive Date: 20170120
  Receipt Date: 20170217
  Transmission Date: 20170428
  Serious: Yes (Other)
  Sender: FDA-Public Use
  Company Number: JP-WARNER CHILCOTT, LLC-1062233

PATIENT
  Age: 80 Year
  Sex: Female

DRUGS (2)
  1. MENATETRENONE [Concomitant]
     Active Substance: MENATETRENONE
  2. BENET [Suspect]
     Active Substance: RISEDRONATE SODIUM
     Route: 048

REACTIONS (1)
  - Atypical femur fracture [Unknown]
